FAERS Safety Report 8833676 (Version 1)
Quarter: 2012Q4

REPORT INFORMATION
  Report Type: 
  Country: US (occurrence: US)
  Receive Date: 20121010
  Receipt Date: 20121010
  Transmission Date: 20130627
  Serious: Yes (Other)
  Sender: FDA-Public Use
  Company Number: US-BAYER-2012-104456

PATIENT
  Age: 68 Year
  Sex: Male

DRUGS (2)
  1. BAYER GENUINE ASPIRIN ORIGINAL STRENGTH [Suspect]
     Dosage: UNK
     Dates: start: 201111
  2. PLAVIX [Suspect]
     Dosage: UNK
     Dates: start: 201111

REACTIONS (2)
  - Gastrointestinal perforation [None]
  - Gastrointestinal haemorrhage [None]
